FAERS Safety Report 7793648-8 (Version None)
Quarter: 2011Q4

REPORT INFORMATION
  Report Type: 
  Country: None (occurrence: None)
  Receive Date: 20111003
  Receipt Date: 20110927
  Transmission Date: 20120403
  Serious: Yes (Hospitalization)
  Sender: FDA-Public Use
  Company Number: US-PFIZER INC-2011230455

PATIENT
  Sex: Female
  Weight: 90.703 kg

DRUGS (8)
  1. LYRICA [Suspect]
     Dosage: 150 MG, UNK
     Route: 048
     Dates: end: 20110901
  2. LISINOPRIL [Concomitant]
     Dosage: 5 MG
  3. ACETAMINOPHEN AND HYDROCODONE BITARTRATE [Concomitant]
     Dosage: 10/325
  4. VITAMIN D [Concomitant]
     Dosage: UNK
  5. FISH OIL [Concomitant]
     Dosage: UNK
  6. FENOFIBRATE [Concomitant]
     Dosage: 160 MG
  7. ALLOPURINOL [Concomitant]
     Dosage: 100 MG
  8. LYRICA [Suspect]
     Indication: BACK PAIN
     Dosage: 150 MG, 1X/DAY
     Route: 048
     Dates: start: 20060101

REACTIONS (3)
  - ANAEMIA [None]
  - ULCER HAEMORRHAGE [None]
  - RENAL FAILURE [None]
